FAERS Safety Report 6384910-4 (Version None)
Quarter: 2009Q4

REPORT INFORMATION
  Report Type: 
  Country: None (occurrence: None)
  Receive Date: 20091002
  Receipt Date: 20090929
  Transmission Date: 20100525
  Serious: Yes (Hospitalization, Other)
  Sender: FDA-Public Use
  Company Number: US-TEVA-208733USA

PATIENT
  Age: 52 Year
  Sex: Female
  Weight: 71.732 kg

DRUGS (8)
  1. METHOTREXATE SOLUTION FOR INJECTION, 25 MG/ML [Suspect]
     Indication: RHEUMATOID ARTHRITIS
     Dates: start: 20071201
  2. HYDROXYCHLOROQUINE SULFATE [Suspect]
     Indication: RHEUMATOID ARTHRITIS
     Route: 048
  3. ETANERCEPT [Suspect]
     Indication: RHEUMATOID ARTHRITIS
     Dates: start: 20071201, end: 20090701
  4. CLOPIDOGREL [Suspect]
     Indication: CORONARY ARTERIAL STENT INSERTION
     Route: 048
     Dates: start: 20090301
  5. CLOPIDOGREL [Suspect]
     Indication: CHEST PAIN
  6. ACETYLSALICYLIC ACID [Concomitant]
     Route: 048
  7. RANITIDINE HYDROCHLORIDE [Concomitant]
     Route: 048
  8. METOPROLOL SUCCINATE [Concomitant]
     Route: 048

REACTIONS (7)
  - BLOOD PRESSURE INCREASED [None]
  - CHEST PAIN [None]
  - CORONARY ARTERY OCCLUSION [None]
  - GASTROINTESTINAL DISORDER [None]
  - PULMONARY HYPERTENSION [None]
  - RIGHT VENTRICULAR FAILURE [None]
  - ROSACEA [None]
